FAERS Safety Report 18246130 (Version 5)
Quarter: 2023Q2

REPORT INFORMATION
  Report Type: Report from Study
  Country: JP (occurrence: JP)
  Receive Date: 20200909
  Receipt Date: 20230424
  Transmission Date: 20230722
  Serious: Yes (Other)
  Sender: FDA-Public Use
  Company Number: JP-ASTELLAS-2020JP013212

PATIENT
  Age: 45 Year
  Sex: Female
  Weight: 64 kg

DRUGS (11)
  1. ENFORTUMAB VEDOTIN [Suspect]
     Active Substance: ENFORTUMAB VEDOTIN
     Indication: Breast cancer
     Dosage: 80 MG, WEEKLY FOR 3 CONSECUTIVE WEEKS FOLLOWED BY 1 WEEK REST
     Route: 042
     Dates: start: 20200827
  2. LANSOPRAZOLE [Concomitant]
     Active Substance: LANSOPRAZOLE
     Indication: Gastritis prophylaxis
     Route: 048
     Dates: start: 202003
  3. CELECOXIB [Concomitant]
     Active Substance: CELECOXIB
     Indication: Tumour pain
     Route: 048
     Dates: start: 202003
  4. HYDROMORPHONE HYDROCHLORIDE [Concomitant]
     Active Substance: HYDROMORPHONE HYDROCHLORIDE
     Indication: Tumour pain
     Route: 048
     Dates: start: 202003
  5. CALONAL [Concomitant]
     Active Substance: ACETAMINOPHEN
     Indication: Tumour pain
     Route: 048
     Dates: start: 20200820
  6. WHITE PETROLATUM [Concomitant]
     Active Substance: PETROLATUM
     Indication: Prophylaxis
     Dosage: ADEQUATE DOSE, AS NEEDED
     Route: 061
     Dates: start: 20200820
  7. HYDROMORPHONE HYDROCHLORIDE [Concomitant]
     Active Substance: HYDROMORPHONE HYDROCHLORIDE
     Indication: Tumour pain
     Dosage: 10 MG/DAY, UNKNOWN FREQ.
     Route: 048
     Dates: start: 20200827
  8. MIROGABALIN BESYLATE [Concomitant]
     Active Substance: MIROGABALIN BESYLATE
     Indication: Tumour pain
     Route: 048
     Dates: start: 20200827
  9. ANETOCAINE [Concomitant]
     Indication: Tumour pain
     Dosage: ADEQUATE DOSE, AS NEEDED
     Route: 061
     Dates: start: 20200827
  10. SYMPROIC [Concomitant]
     Active Substance: NALDEMEDINE
     Indication: Constipation prophylaxis
     Dosage: 0.2 MG, ONCE DAILY
     Route: 048
     Dates: start: 20200827
  11. BEPOTASTINE BESYLATE [Concomitant]
     Active Substance: BEPOTASTINE BESYLATE
     Indication: Pruritus
     Route: 048
     Dates: start: 20200901, end: 20200903

REACTIONS (2)
  - Alanine aminotransferase increased [Recovered/Resolved]
  - Skin cancer [Not Recovered/Not Resolved]

NARRATIVE: CASE EVENT DATE: 20200903
